FAERS Safety Report 10422055 (Version 2)
Quarter: 2015Q3

REPORT INFORMATION
  Report Type: Spontaneous
  Country: US (occurrence: US)
  Receive Date: 20140901
  Receipt Date: 20150827
  Transmission Date: 20151125
  Serious: No
  Sender: FDA-Public Use
  Company Number: US-SA-2013SA105377

PATIENT
  Sex: Female

DRUGS (1)
  1. AVAPRO [Suspect]
     Active Substance: IRBESARTAN
     Dosage: FOR YEARS?STRENGTH: 150 MG
     Route: 065

REACTIONS (3)
  - Malaise [Unknown]
  - Dizziness [Unknown]
  - Nausea [Unknown]
